FAERS Safety Report 6111007-0 (Version None)
Quarter: 2009Q1

REPORT INFORMATION
  Report Type: 
  Country: None (occurrence: None)
  Receive Date: 20090311
  Receipt Date: 20090304
  Transmission Date: 20090719
  Serious: Yes (Hospitalization)
  Sender: FDA-Public Use
  Company Number: PHHY2009FR06965

PATIENT
  Sex: Male

DRUGS (3)
  1. EXJADE [Suspect]
     Indication: HAEMOCHROMATOSIS
  2. APROVEL [Concomitant]
     Indication: HYPERTENSION
     Dosage: 150 MG DAILY
  3. MOPRAL [Concomitant]

REACTIONS (6)
  - BLOOD CREATININE INCREASED [None]
  - CONSTIPATION [None]
  - FANCONI SYNDROME [None]
  - GENERAL PHYSICAL HEALTH DETERIORATION [None]
  - HYPOKALAEMIA [None]
  - MALAISE [None]
